FAERS Safety Report 9530813 (Version 1)
Quarter: 2013Q1

REPORT INFORMATION
  Report Type: Spontaneous
  Country: US (occurrence: None)
  Receive Date: 20130315
  Receipt Date: 20130315
  Transmission Date: 20140127
  Serious: Yes (Other)
  Sender: FDA-Public Use
  Company Number: US-JNJFOC-20121209238

PATIENT
  Age: 56 Year
  Sex: Female

DRUGS (22)
  1. IBUPROFEN [Suspect]
     Indication: PRODUCT USED FOR UNKNOWN INDICATION
     Dosage: UNKNOWN
  2. DEMEROL [Suspect]
     Dosage: UNKNOWN
  3. MORPHINE SULFATE [Suspect]
  4. CODEINE [Suspect]
  5. DIOVAN (VALSARTAN) [Concomitant]
  6. ESTROGENS CONJUGATED [Concomitant]
  7. JANUVIA (SITAGLIPTIN PHOSPHATE) [Concomitant]
  8. GLUCOTROL (GLIPIZIDE) [Concomitant]
  9. HUMALOG (INSULIN LISPRO) [Concomitant]
  10. LANTUS (INSULIN GLARGINE) [Concomitant]
  11. VICTOZA (LIRAGLUTIDE) [Concomitant]
  12. LISINOPRIL [Concomitant]
  13. MEVACOR (LOVASTATIN) [Concomitant]
  14. LOPRESSOR (METOPROLOL TARTRATE) [Concomitant]
  15. NEURONTIN (GABAPENTIN) [Concomitant]
  16. KLOR-CON (POTASSIUM CHLORIDE) [Concomitant]
  17. CRESTOR (ROSUVASTATIN CALCIUM) [Concomitant]
  18. WELCHOL (COLESEVELAM HYDROCHLORIDE) (625 MILLIGRAM, TABLET) (COLESEVELAM HYDROCHLORIDE) [Concomitant]
  19. COENZYME Q10 (UBIDECARENONE) [Concomitant]
  20. CATAPRES (CLONIDINE) [Concomitant]
  21. QUINAPRIL HYDROCHLORIDE [Concomitant]
  22. LASIX (FUROSEMIDE) [Concomitant]

REACTIONS (1)
  - Drug hypersensitivity [None]
